FAERS Safety Report 8189233 (Version 9)
Quarter: 2012Q4

REPORT INFORMATION
  Report Type: 
  Country: US (occurrence: US)
  Receive Date: 20111019
  Receipt Date: 20120824
  Transmission Date: 20130627
  Serious: Yes (Hospitalization, Other)
  Sender: FDA-Public Use
  Company Number: US-ELI_LILLY_AND_COMPANY-US201101007575

PATIENT
  Age: 86 None
  Sex: Female
  Weight: 50.79 kg

DRUGS (21)
  1. FORTEO [Suspect]
     Indication: OSTEOPOROSIS
     Dosage: 20 ug, daily (1/D)
     Route: 058
     Dates: start: 201004
  2. FORTEO [Suspect]
     Dosage: 20 ug, qd
     Route: 058
  3. FORTEO [Suspect]
     Dosage: 20 ug, qd
     Route: 058
  4. FORTEO [Suspect]
     Dosage: 20 ug, qd
     Route: 058
  5. FORTEO [Suspect]
     Dosage: 20 ug, qd
     Route: 058
     Dates: end: 20110926
  6. FORTEO [Suspect]
     Dosage: 20 ug, qd
     Route: 058
     Dates: start: 20111010
  7. FORTEO [Suspect]
     Dosage: 20 ug, qd
     Route: 058
  8. FORTEO [Suspect]
     Dosage: 20 ug, qd
     Dates: start: 201004
  9. FORTEO [Suspect]
     Dosage: 20 ug, qd
  10. CALCIUM [Concomitant]
  11. VITAMIN D NOS [Concomitant]
     Dosage: 50000 u, other
  12. OXYGEN [Concomitant]
  13. PANTOTHENIC ACID [Concomitant]
     Dosage: UNK
  14. FOLIC ACID [Concomitant]
     Dosage: UNK
  15. ZINC [Concomitant]
     Dosage: UNK
  16. MULTIVITAMIN [Concomitant]
     Dosage: UNK, qd
  17. STOOL SOFTENER [Concomitant]
     Dosage: UNK
  18. VITAMIN C [Concomitant]
     Dosage: UNK
  19. HYDROCODONE [Concomitant]
     Dosage: UNK, prn
  20. VITAMINS [Concomitant]
     Dosage: UNK
  21. CLARITIN [Concomitant]
     Dosage: UNK

REACTIONS (12)
  - Femur fracture [Recovered/Resolved]
  - Limb operation [Unknown]
  - Thrombosis [Recovering/Resolving]
  - Fall [Recovered/Resolved]
  - Bone density decreased [Unknown]
  - Back pain [Unknown]
  - Fear [Unknown]
  - Injection site haemorrhage [Unknown]
  - Injection site bruising [Unknown]
  - Drug prescribing error [Unknown]
  - Joint swelling [Unknown]
  - Hypoacusis [Not Recovered/Not Resolved]
